FAERS Safety Report 8581166-9 (Version None)
Quarter: 2012Q3

REPORT INFORMATION
  Report Type: 
  Country: None (occurrence: None)
  Receive Date: 20120809
  Receipt Date: 20120730
  Transmission Date: 20120928
  Serious: Yes (Hospitalization)
  Sender: FDA-Public Use
  Company Number: CA-JNJFOC-20120800127

PATIENT
  Sex: Male

DRUGS (1)
  1. REMICADE [Suspect]
     Indication: CROHN'S DISEASE
     Dosage: TREATMENT DISCONTINUED IN APPROXIMATELY SEP-2011
     Route: 042
     Dates: start: 20110808, end: 20110101

REACTIONS (1)
  - IMPAIRED DRIVING ABILITY [None]
